FAERS Safety Report 11262247 (Version 1)
Quarter: 2015Q3

REPORT INFORMATION
  Report Type: Spontaneous
  Country: GB (occurrence: GB)
  Receive Date: 20150710
  Receipt Date: 20150710
  Transmission Date: 20151125
  Serious: Yes (Other)
  Sender: FDA-Public Use
  Company Number: GB-ASTRAZENECA-2015SE65332

PATIENT
  Age: 55 Year
  Sex: Female
  Weight: 73 kg

DRUGS (10)
  1. DAPAGLIFLOZIN [Suspect]
     Active Substance: DAPAGLIFLOZIN
     Route: 048
     Dates: start: 20140723
  2. METFORMIN [Concomitant]
     Active Substance: METFORMIN HYDROCHLORIDE
     Dosage: 1 DF, FIVE TIMES DAILY, UNIT 3
     Dates: start: 20140124
  3. RAMIPRIL. [Concomitant]
     Active Substance: RAMIPRIL
     Dosage: ONE, DF, TWO TIMES A DAY, UNIT 32
     Dates: start: 20140124
  4. GLYCERYL TRINITRATE [Concomitant]
     Active Substance: NITROGLYCERIN
     Dosage: 1-3P PRN
     Dates: start: 20140124
  5. ATORVASTATIN [Concomitant]
     Active Substance: ATORVASTATIN
     Dates: start: 20140124
  6. EZETIMIBE. [Concomitant]
     Active Substance: EZETIMIBE
     Dosage: 1 DF, DAILY, UNIT 32
     Dates: start: 20140124
  7. ASPIRIN. [Concomitant]
     Active Substance: ASPIRIN
     Dosage: 1 DF, AFTER MEALS, EVERY DAY
     Dates: start: 20140124
  8. BECLOMETASONE [Concomitant]
     Active Substance: BECLOMETHASONE DIPROPIONATE
     Dosage: 2 DF, TWO PUFFS TWICE DAILY, UNIT 32
     Dates: start: 20140124
  9. METOPROLOL TARTRATE. [Concomitant]
     Active Substance: METOPROLOL TARTRATE
     Dosage: ONE DF, TWO TIMES A DAY, UNIT 32
     Dates: start: 20140124
  10. TRAMADOL. [Concomitant]
     Active Substance: TRAMADOL
     Dosage: TAKE 1 OR 2 AS DIRECTED
     Dates: start: 20140303

REACTIONS (1)
  - Candida infection [Recovered/Resolved]

NARRATIVE: CASE EVENT DATE: 20150619
